FAERS Safety Report 10178026 (Version 2)
Quarter: 2014Q3

REPORT INFORMATION
  Report Type: Spontaneous
  Country: IT (occurrence: IT)
  Receive Date: 20140517
  Receipt Date: 20140731
  Transmission Date: 20150326
  Serious: Yes (Other)
  Sender: FDA-Public Use
  Company Number: IT-ACCORD-023736

PATIENT
  Age: 64 Year
  Sex: Female

DRUGS (10)
  1. TAREG [Concomitant]
     Active Substance: VALSARTAN
  2. GEMCITABINE/GEMCITABINE HYDROCHLORIDE [Suspect]
     Active Substance: GEMCITABINE\GEMCITABINE HYDROCHLORIDE
     Indication: LUNG NEOPLASM
     Route: 042
     Dates: start: 20131205, end: 20131205
  3. CISPLATIN. [Suspect]
     Active Substance: CISPLATIN
     Indication: LUNG NEOPLASM
     Route: 042
     Dates: start: 20131205, end: 20131205
  4. DELTACORTENE [Concomitant]
     Active Substance: PREDNISONE
  5. STILNOX [Concomitant]
     Active Substance: ZOLPIDEM TARTRATE
  6. TACHIDOL [Concomitant]
     Active Substance: ACETAMINOPHEN\CODEINE PHOSPHATE
  7. CARDIAZOL-PARACODINA [Concomitant]
     Dosage: 20 DROPS
  8. PANTORC [Concomitant]
     Active Substance: PANTOPRAZOLE SODIUM
  9. GASTROGEL [Concomitant]
     Active Substance: ALUMINUM HYDROXIDE\MAGNESIUM HYDROXIDE\MAGNESIUM TRISILICATE
  10. PLASIL [Concomitant]
     Active Substance: METOCLOPRAMIDE HYDROCHLORIDE

REACTIONS (5)
  - Nausea [Recovered/Resolved]
  - Asthenia [Recovered/Resolved]
  - Diarrhoea [Recovered/Resolved]
  - Dehydration [Recovered/Resolved]
  - Abdominal pain upper [Recovered/Resolved]

NARRATIVE: CASE EVENT DATE: 20131206
